FAERS Safety Report 16791628 (Version 5)
Quarter: 2019Q4

REPORT INFORMATION
  Report Type: Report from Study
  Country: PL (occurrence: PL)
  Receive Date: 20190910
  Receipt Date: 20191204
  Transmission Date: 20200122
  Serious: Yes (Life-Threatening, Hospitalization)
  Sender: FDA-Public Use
  Company Number: PL-PFIZER INC-2019381734

PATIENT
  Age: 75 Year
  Sex: Female
  Weight: 65 kg

DRUGS (18)
  1. CONTROLOC [Concomitant]
     Active Substance: PANTOPRAZOLE SODIUM
     Indication: GASTRIC ULCER
     Dosage: 20 MG, 8:00 AM
     Route: 048
     Dates: start: 20190831
  2. EDICIN [Concomitant]
     Active Substance: VANCOMYCIN HYDROCHLORIDE
     Indication: DIARRHOEA
     Dosage: UNK
     Dates: start: 20190826, end: 20190831
  3. KALIPOZ [Concomitant]
     Active Substance: POTASSIUM CHLORIDE
     Indication: HYPOKALAEMIA
     Dosage: 391 MG, 3 TIMES A DAY EVERY 8 HOURS
     Route: 048
     Dates: start: 20190323
  4. TRITACE [Concomitant]
     Active Substance: RAMIPRIL
     Indication: HYPERTENSION
     Dosage: 2.5 MG, 8:00 PM
     Route: 048
     Dates: start: 20090501
  5. CLEMASTINUM [CLEMASTINE] [Concomitant]
     Indication: PREMEDICATION
     Dosage: UNK
     Dates: start: 20190816, end: 20190823
  6. EUTHYROX N [Concomitant]
     Active Substance: LEVOTHYROXINE SODIUM
     Indication: HYPOTHYROIDISM
     Dosage: 75 UG, 8:00 AM
     Route: 048
     Dates: start: 20190101
  7. ELECTROLYTE SOLUTIONS [ELECTROLYTES NOS] [Concomitant]
     Indication: DEHYDRATION
     Dosage: 500 ML, UNK
     Dates: start: 20190809, end: 20190831
  8. MYLOTARG [Suspect]
     Active Substance: GEMTUZUMAB OZOGAMICIN
     Indication: ACUTE MYELOID LEUKAEMIA
     Dosage: 4.5 MG, CYCLIC (REGIMEN: 1, 4, 7)
     Route: 041
     Dates: start: 20190816, end: 20190822
  9. HEVIRAN [ACICLOVIR] [Concomitant]
     Indication: ANTIVIRAL PROPHYLAXIS
     Dosage: 800 MG, REGIMEN: 8:00AM AND 8:00 PM
     Route: 048
     Dates: start: 20190809
  10. TAZOCIN [Concomitant]
     Active Substance: PIPERACILLIN SODIUM\TAZOBACTAM SODIUM
     Indication: INFECTION PROPHYLAXIS
     Dosage: UNK
     Dates: start: 20190813, end: 20190831
  11. MILURIT [Concomitant]
     Active Substance: ALLOPURINOL
     Indication: PROPHYLAXIS
  12. BISOCARD [Concomitant]
     Active Substance: BISOPROLOL
     Indication: HYPERTENSION
     Dosage: 5 MG, REGIMEN: 8:00 AM AND 2.5MG 8:00PM
     Route: 048
     Dates: start: 20190501
  13. DORETA [Concomitant]
     Active Substance: ACETAMINOPHEN\TRAMADOL HYDROCHLORIDE
     Indication: CHEST PAIN
     Dosage: UNK
     Dates: start: 20190726
  14. SYMLEPTIC [Concomitant]
     Indication: CHEST PAIN
     Dosage: 300 MG, ONCE A DAY
     Route: 048
     Dates: start: 20190809
  15. SORTIS [Concomitant]
     Active Substance: ATORVASTATIN
     Indication: HYPERLIPIDAEMIA
     Dosage: UNK
     Dates: start: 20190501
  16. MILURIT [Concomitant]
     Active Substance: ALLOPURINOL
     Indication: HYPERURICAEMIA
     Dosage: 300 MG, ONCE A DAY
     Route: 048
     Dates: start: 20190809
  17. VFEND [Concomitant]
     Active Substance: VORICONAZOLE
     Indication: INFECTION PROPHYLAXIS
     Dosage: 200 MG, REGIMEN: 8:00 AM AND 8:00 PM
     Route: 048
     Dates: start: 20190418, end: 20190802
  18. BISEPTOL [Concomitant]
     Active Substance: SULFAMETHOXAZOLE\TRIMETHOPRIM
     Indication: INFECTION PROPHYLAXIS
     Dosage: 960 MG, 3 TIMES A WEEK
     Route: 048
     Dates: start: 20190819, end: 20191009

REACTIONS (1)
  - Febrile neutropenia [Recovered/Resolved]

NARRATIVE: CASE EVENT DATE: 20190902
